FAERS Safety Report 22389434 (Version 4)
Quarter: 2024Q1

REPORT INFORMATION
  Report Type: Report from Study
  Country: US (occurrence: US)
  Receive Date: 20230531
  Receipt Date: 20240304
  Transmission Date: 20240410
  Serious: Yes (Hospitalization, Other)
  Sender: FDA-Public Use
  Company Number: US-TAKEDA-2023TUS052051

PATIENT
  Sex: Female

DRUGS (13)
  1. IXAZOMIB [Suspect]
     Active Substance: IXAZOMIB
     Indication: Plasma cell myeloma
     Dosage: 4 MILLIGRAM
     Route: 048
     Dates: start: 2017
  2. IXAZOMIB [Suspect]
     Active Substance: IXAZOMIB
     Dosage: 4 MILLIGRAM
     Route: 048
  3. IXAZOMIB [Suspect]
     Active Substance: IXAZOMIB
     Dosage: 3 MILLIGRAM
     Route: 048
     Dates: start: 2017
  4. CALCIUM [Concomitant]
     Active Substance: CALCIUM
     Dosage: 500 MILLIGRAM
     Route: 065
  5. FERROUS SULFATE [Concomitant]
     Active Substance: FERROUS SULFATE
     Dosage: 325 MILLIGRAM
     Route: 065
  6. MAGNESIUM [Concomitant]
     Active Substance: MAGNESIUM
     Dosage: 400 MILLIGRAM
     Route: 065
  7. POTASSIUM CHLORIDE [Concomitant]
     Active Substance: POTASSIUM CHLORIDE
     Dosage: 20 MILLIEQUIVALENT
     Route: 065
  8. VITAMIN B12 [Concomitant]
     Active Substance: CYANOCOBALAMIN
     Dosage: 2000 MICROGRAM
     Route: 065
  9. DEXAMETHASONE [Concomitant]
     Active Substance: DEXAMETHASONE
     Dosage: UNK
     Route: 065
  10. VALSARTAN [Concomitant]
     Active Substance: VALSARTAN
     Dosage: UNK
     Route: 065
  11. METOPROLOL [Concomitant]
     Active Substance: METOPROLOL
     Dosage: UNK
     Route: 065
  12. INDAPAMIDE [Concomitant]
     Active Substance: INDAPAMIDE
     Dosage: UNK
     Route: 065
  13. SPIRONOLACTONE [Concomitant]
     Active Substance: SPIRONOLACTONE
     Dosage: UNK
     Route: 065

REACTIONS (9)
  - Pneumonia [Recovered/Resolved]
  - Neuropathy peripheral [Unknown]
  - Asthenia [Unknown]
  - Vomiting [Not Recovered/Not Resolved]
  - Diarrhoea [Unknown]
  - Nausea [Unknown]
  - Sleep disorder [Unknown]
  - Alopecia [Recovering/Resolving]
  - Herpes zoster [Not Recovered/Not Resolved]

NARRATIVE: CASE EVENT DATE: 20170101
